FAERS Safety Report 10076794 (Version 2)
Quarter: 2014Q2

REPORT INFORMATION
  Report Type: Spontaneous
  Country: AU (occurrence: AU)
  Receive Date: 20140414
  Receipt Date: 20140619
  Transmission Date: 20141212
  Serious: Yes (Other)
  Sender: FDA-Public Use
  Company Number: AU-BRISTOL-MYERS SQUIBB COMPANY-20604609

PATIENT
  Age: 54 Year
  Sex: Female

DRUGS (5)
  1. ABATACEPT SUBQ INJECTION 125MG/ML [Suspect]
     Indication: RHEUMATOID ARTHRITIS
     Route: 058
     Dates: start: 200805
  2. METHOTREXATE [Suspect]
     Indication: RHEUMATOID ARTHRITIS
  3. LEFLUNOMIDE [Suspect]
     Indication: RHEUMATOID ARTHRITIS
  4. CRESTOR [Suspect]
     Indication: HYPERLIPIDAEMIA
  5. INSULIN [Suspect]
     Indication: TYPE 1 DIABETES MELLITUS

REACTIONS (1)
  - Spinal cord disorder [Unknown]
